FAERS Safety Report 12735713 (Version 1)
Quarter: 2016Q3

REPORT INFORMATION
  Report Type: Spontaneous
  Country: US (occurrence: US)
  Receive Date: 20160913
  Receipt Date: 20160913
  Transmission Date: 20161109
  Serious: No
  Sender: FDA-Public Use
  Company Number: US-ASTRAZENECA-2016SE92556

PATIENT
  Age: 83 Year
  Sex: Female

DRUGS (10)
  1. LETROZOLE. [Concomitant]
     Active Substance: LETROZOLE
     Indication: BREAST CANCER
  2. IBRANCE [Suspect]
     Active Substance: PALBOCICLIB
     Dosage: 125.0MG UNKNOWN
     Route: 048
     Dates: end: 20160707
  3. ALLOPURINOL. [Concomitant]
     Active Substance: ALLOPURINOL
  4. LETROZOLE. [Concomitant]
     Active Substance: LETROZOLE
     Indication: BONE CANCER
  5. LEVOTHYROXINE. [Concomitant]
     Active Substance: LEVOTHYROXINE
     Indication: THYROID DISORDER
     Route: 048
  6. FASLODEX [Suspect]
     Active Substance: FULVESTRANT
     Route: 030
  7. ARIMIDEX [Suspect]
     Active Substance: ANASTROZOLE
     Route: 048
  8. ATENOLOL. [Concomitant]
     Active Substance: ATENOLOL
     Indication: HYPERTENSION
     Dosage: ONE HALF TABLET , TWICE A DAY
  9. IBRANCE [Suspect]
     Active Substance: PALBOCICLIB
     Dosage: 100.0MG UNKNOWN
     Route: 048
  10. LETROZOLE. [Concomitant]
     Active Substance: LETROZOLE
     Indication: LUNG NEOPLASM MALIGNANT

REACTIONS (2)
  - Full blood count decreased [Unknown]
  - Drug ineffective [Unknown]
